FAERS Safety Report 20709137 (Version 1)
Quarter: 2022Q2

REPORT INFORMATION
  Report Type: Spontaneous
  Country: US (occurrence: US)
  Receive Date: 20220414
  Receipt Date: 20220414
  Transmission Date: 20220720
  Serious: Yes (Hospitalization, Other)
  Sender: FDA-Public Use
  Company Number: US-BRISTOL-MYERS SQUIBB COMPANY-2022-018697

PATIENT
  Age: 67 Year
  Sex: Female
  Weight: 26.76 kg

DRUGS (21)
  1. REVLIMID [Suspect]
     Active Substance: LENALIDOMIDE
     Indication: Product used for unknown indication
     Dosage: 21 DAYS ON, 7 DAYS OFF
     Route: 048
     Dates: start: 20151007, end: 20161001
  2. REVLIMID [Suspect]
     Active Substance: LENALIDOMIDE
     Dosage: 28 DAYS CONT.
     Route: 048
     Dates: start: 20161010, end: 20170814
  3. REVLIMID [Suspect]
     Active Substance: LENALIDOMIDE
     Dosage: EVERY OTHER DAY FOR 28 DAYS
     Route: 048
     Dates: start: 20170815, end: 20180328
  4. REVLIMID [Suspect]
     Active Substance: LENALIDOMIDE
     Dosage: 21 DAYS ON, 7 DAYS OFF
     Route: 048
     Dates: start: 20181203, end: 20190807
  5. REVLIMID [Suspect]
     Active Substance: LENALIDOMIDE
     Dosage: 21 DAYS ON 7 DAYS OFF
     Route: 048
     Dates: start: 20201202, end: 20210111
  6. POMALIDOMIDE [Suspect]
     Active Substance: POMALIDOMIDE
     Indication: Product used for unknown indication
     Dosage: DAYS 1 TO 21 OF A 28 DAY CYCLE
     Route: 048
     Dates: start: 20180409, end: 20180903
  7. DECADRON [Suspect]
     Active Substance: DEXAMETHASONE
     Indication: Product used for unknown indication
     Dosage: DAYS 1, 8, 15, 22 OF A DAY 28 CYCLE
     Route: 048
     Dates: start: 20141215, end: 20150401
  8. DECADRON [Suspect]
     Active Substance: DEXAMETHASONE
     Dosage: WEEKLY
     Route: 048
     Dates: start: 20180409, end: 20180903
  9. DECADRON [Suspect]
     Active Substance: DEXAMETHASONE
     Dosage: WEEKLY
     Route: 048
     Dates: start: 20181203, end: 20190807
  10. DECADRON [Suspect]
     Active Substance: DEXAMETHASONE
     Dosage: WEEKLY
     Route: 048
     Dates: start: 20201202, end: 20210111
  11. DECADRON [Suspect]
     Active Substance: DEXAMETHASONE
     Dosage: WEEKLY
     Route: 048
     Dates: start: 20210114, end: 20210128
  12. CYTOXAN [Suspect]
     Active Substance: CYCLOPHOSPHAMIDE
     Indication: Product used for unknown indication
     Dosage: DAYS 1, 8, 15, 22 OF A 28 DAY CYCLE
     Route: 048
     Dates: start: 20141215, end: 20150401
  13. CYTOXAN [Suspect]
     Active Substance: CYCLOPHOSPHAMIDE
     Dosage: WEEKLY
     Route: 042
     Dates: start: 20210114, end: 20210128
  14. ALKERAN [Suspect]
     Active Substance: MELPHALAN
     Indication: Product used for unknown indication
     Route: 042
     Dates: start: 20150501, end: 20150501
  15. VELCADE [Suspect]
     Active Substance: BORTEZOMIB
     Indication: Product used for unknown indication
     Dosage: 1X WEEKLY, NO REST PERIOD: DAY 1 Q7D
     Route: 058
     Dates: start: 20141215, end: 20150401
  16. VELCADE [Suspect]
     Active Substance: BORTEZOMIB
     Dosage: 1X WEEKLY, NO REST PERIOD: DAY 1 Q7D
     Route: 058
     Dates: start: 20210114, end: 20210128
  17. CARFILZOMIB [Suspect]
     Active Substance: CARFILZOMIB
     Indication: Product used for unknown indication
     Dosage: DAYS 1, 2, 8, 9, 15, 16
     Route: 042
     Dates: start: 20180409, end: 20180701
  18. DARZALEX [Concomitant]
     Active Substance: DARATUMUMAB
     Indication: Product used for unknown indication
     Dosage: 16 MG/KG; WEEKLY; IV
     Dates: start: 20181203, end: 20200318
  19. DARZALEX [Concomitant]
     Active Substance: DARATUMUMAB
     Dosage: 16MG/KG, WEEKLY, IV
     Route: 042
     Dates: start: 20200511, end: 20201111
  20. SELINEXOR [Concomitant]
     Active Substance: SELINEXOR
     Indication: Product used for unknown indication
     Dosage: 16MG; 1 WEEKLY, PO
     Dates: start: 20201202, end: 20210111
  21. BLENREP [Concomitant]
     Active Substance: BELANTAMAB MAFODOTIN-BLMF
     Indication: Product used for unknown indication
     Dosage: 166 MG, ONCE 3 WEEKLY, IV
     Dates: start: 20210210

REACTIONS (2)
  - Anaemia [Unknown]
  - Aneurysm [Unknown]

NARRATIVE: CASE EVENT DATE: 20210713
